FAERS Safety Report 20629442 (Version 1)
Quarter: 2022Q1

REPORT INFORMATION
  Report Type: Spontaneous
  Country: US (occurrence: US)
  Receive Date: 20220323
  Receipt Date: 20220323
  Transmission Date: 20220424
  Serious: Yes (Hospitalization, Disabling)
  Sender: FDA-Public Use
  Company Number: US-TEVA-2022-US-2018929

PATIENT
  Age: 69 Year
  Sex: Male

DRUGS (6)
  1. PREDNISONE [Suspect]
     Active Substance: PREDNISONE
     Indication: Factor VIII deficiency
     Dosage: 80 MILLIGRAM DAILY;
     Route: 065
  2. PREDNISONE [Suspect]
     Active Substance: PREDNISONE
     Indication: Immunosuppressant drug therapy
  3. CYCLOPHOSPHAMIDE [Suspect]
     Active Substance: CYCLOPHOSPHAMIDE
     Indication: Factor VIII deficiency
     Dosage: 150 MILLIGRAM DAILY;
     Route: 065
  4. CYCLOPHOSPHAMIDE [Suspect]
     Active Substance: CYCLOPHOSPHAMIDE
     Indication: Immunosuppressant drug therapy
  5. RITUXIMAB [Suspect]
     Active Substance: RITUXIMAB
     Indication: Factor VIII deficiency
     Dosage: THREE INFUSIONS
     Route: 065
  6. RITUXIMAB [Suspect]
     Active Substance: RITUXIMAB
     Indication: Immunosuppressant drug therapy

REACTIONS (6)
  - Weight bearing difficulty [Recovered/Resolved]
  - Osteomyelitis acute [Recovered/Resolved]
  - Cardiac arrest [Unknown]
  - Serratia infection [Recovering/Resolving]
  - Cellulitis [Recovering/Resolving]
  - Myositis [Recovering/Resolving]
